FAERS Safety Report 4439833-4 (Version None)
Quarter: 2004Q3

REPORT INFORMATION
  Report Type: 
  Country: None (occurrence: None)
  Receive Date: 20040831
  Receipt Date: 20040820
  Transmission Date: 20050211
  Serious: Yes (Other)
  Sender: FDA-Public Use
  Company Number: STA-AE-04-MTX-381

PATIENT
  Age: 40 Year
  Sex: Male

DRUGS (6)
  1. METHOTREXATE [Suspect]
     Indication: RHEUMATOID ARTHRITIS
     Dosage: 2.5 MG 1XPER 1 WK
  2. ENBREL [Suspect]
     Indication: RHEUMATOID ARTHRITIS
     Dosage: 25 MG 2X PER 1 WK, SC
     Route: 058
  3. PREDNISOLONE [Concomitant]
  4. INDOMETHACIN [Concomitant]
  5. CALCIUM (CALCIUM) [Concomitant]
  6. IRON (IRON) [Concomitant]

REACTIONS (2)
  - EOSINOPHILIA [None]
  - HAEMOGLOBIN DECREASED [None]
